FAERS Safety Report 4982644-1 (Version None)
Quarter: 2006Q2

REPORT INFORMATION
  Report Type: 
  Country: None (occurrence: None)
  Receive Date: 20060419
  Receipt Date: 20060407
  Transmission Date: 20061013
  Serious: Yes (Other)
  Sender: FDA-Public Use
  Company Number: 2006045179

PATIENT
  Age: 51 Year
  Sex: Female
  Weight: 47.6277 kg

DRUGS (5)
  1. NEURONTIN [Suspect]
     Indication: CONVULSION
     Dosage: 1200 MG (4 IN 1 D), ORAL
     Route: 048
     Dates: start: 20040101
  2. PHENOBARBITAL TAB [Concomitant]
  3. KLONOPIN [Concomitant]
  4. DURAGESIC-100 [Concomitant]
  5. PRILOSEC [Concomitant]

REACTIONS (7)
  - AREFLEXIA [None]
  - BREAST CANCER [None]
  - DRUG EFFECT DECREASED [None]
  - ECONOMIC PROBLEM [None]
  - IATROGENIC INJURY [None]
  - MONOPLEGIA [None]
  - SENSORY LOSS [None]
